FAERS Safety Report 8390803-3 (Version None)
Quarter: 2012Q2

REPORT INFORMATION
  Report Type: 
  Country: None (occurrence: None)
  Receive Date: 20120516
  Receipt Date: 20120507
  Transmission Date: 20120825
  Serious: Yes (Other)
  Sender: FDA-Public Use
  Company Number: 2012SP024334

PATIENT
  Sex: Female

DRUGS (3)
  1. PEGASYS [Suspect]
     Indication: HEPATITIS C
     Dates: start: 20111101
  2. VICTRELIS [Suspect]
     Indication: HEPATITIS C
     Dates: start: 20111129
  3. RIBAVIRIN [Suspect]
     Indication: HEPATITIS C
     Dates: start: 20111101

REACTIONS (12)
  - SUICIDAL IDEATION [None]
  - DRY MOUTH [None]
  - ALOPECIA [None]
  - INJECTION SITE SCAR [None]
  - NERVOUSNESS [None]
  - ANAEMIA [None]
  - SKIN DISCOLOURATION [None]
  - IRRITABILITY [None]
  - WEIGHT DECREASED [None]
  - MUSCLE ATROPHY [None]
  - DYSGEUSIA [None]
  - LIP DRY [None]
